FAERS Safety Report 20852880 (Version 1)
Quarter: 2022Q2

REPORT INFORMATION
  Report Type: Spontaneous
  Country: DE (occurrence: DE)
  Receive Date: 20220520
  Receipt Date: 20220520
  Transmission Date: 20220720
  Serious: Yes (Other)
  Sender: FDA-Public Use
  Company Number: DE-NOVARTISPH-NVSC2022DE115284

PATIENT
  Sex: Female

DRUGS (6)
  1. ELTROMBOPAG OLAMINE [Suspect]
     Active Substance: ELTROMBOPAG OLAMINE
     Indication: Immune thrombocytopenia
     Dosage: 75 MG, QD 1 X DAILY
     Route: 065
     Dates: start: 2018
  2. ELTROMBOPAG OLAMINE [Suspect]
     Active Substance: ELTROMBOPAG OLAMINE
     Dosage: 50 MG, QD 1 X DAILY
     Route: 065
  3. ELTROMBOPAG OLAMINE [Suspect]
     Active Substance: ELTROMBOPAG OLAMINE
     Dosage: 25 MG 3 X WEEKLY
     Route: 065
     Dates: start: 202204
  4. FOSTAMATINIB [Concomitant]
     Active Substance: FOSTAMATINIB
     Indication: Product used for unknown indication
     Dosage: 200 MG (2 X 100 MG)
     Route: 065
     Dates: start: 202112
  5. FOSTAMATINIB [Concomitant]
     Active Substance: FOSTAMATINIB
     Dosage: 300 MG (2 X 150 MG)
     Route: 065
  6. FOSTAMATINIB [Concomitant]
     Active Substance: FOSTAMATINIB
     Dosage: (2 X 15 MG)
     Route: 065
     Dates: start: 202204

REACTIONS (2)
  - Platelet count decreased [Recovering/Resolving]
  - Haemorrhage [Recovering/Resolving]

NARRATIVE: CASE EVENT DATE: 20211001
